FAERS Safety Report 6474858-9 (Version None)
Quarter: 2009Q4

REPORT INFORMATION
  Report Type: 
  Country: None (occurrence: None)
  Receive Date: 20091204
  Receipt Date: 20090713
  Transmission Date: 20100525
  Serious: Yes (Hospitalization, Other)
  Sender: FDA-Public Use
  Company Number: US-ELI_LILLY_AND_COMPANY-US200902004763

PATIENT
  Sex: Female

DRUGS (2)
  1. FORTEO [Suspect]
     Indication: OSTEOPOROSIS
     Dosage: 20 UG, UNK
     Dates: start: 20060401, end: 20080722
  2. TYLENOL /USA/ [Concomitant]

REACTIONS (7)
  - CONTUSION [None]
  - FALL [None]
  - FRACTURE [None]
  - HAEMORRHAGE [None]
  - HIP FRACTURE [None]
  - PAIN [None]
  - PELVIC FRACTURE [None]
